FAERS Safety Report 5787551-2 (Version None)
Quarter: 2008Q2

REPORT INFORMATION
  Report Type: 
  Country: None (occurrence: None)
  Receive Date: 20080625
  Receipt Date: 20071105
  Transmission Date: 20081010
  Serious: No
  Sender: FDA-Public Use
  Company Number: US-ASTRAZENECA-2007UW25590

PATIENT
  Age: 68 Year
  Sex: Female
  Weight: 53.1 kg

DRUGS (2)
  1. PULMICORT [Suspect]
     Indication: ASTHMA
     Dosage: 2 PUFFS BID
     Route: 055
  2. SEREVENT [Suspect]
     Dosage: 1 PUFF BID

REACTIONS (1)
  - TONGUE DISORDER [None]
